FAERS Safety Report 22136424 (Version 1)
Quarter: 2023Q1

REPORT INFORMATION
  Report Type: Spontaneous
  Country: US (occurrence: US)
  Receive Date: 20230324
  Receipt Date: 20230324
  Transmission Date: 20230417
  Serious: Yes (Disabling, Other)
  Sender: FDA-Public Use
  Company Number: US-SEATTLE GENETICS-2022SGN11937

PATIENT
  Sex: Female

DRUGS (1)
  1. TIVDAK [Suspect]
     Active Substance: TISOTUMAB VEDOTIN-TFTV
     Indication: Cervix carcinoma
     Dosage: UNK UNK, Q3WEEKS
     Route: 065
     Dates: start: 202205

REACTIONS (8)
  - Neuropathy peripheral [Recovering/Resolving]
  - Eye disorder [Unknown]
  - Mobility decreased [Unknown]
  - Balance disorder [Unknown]
  - Walking aid user [Unknown]
  - Fall [Unknown]
  - Dry eye [Not Recovered/Not Resolved]
  - Muscular weakness [Unknown]

NARRATIVE: CASE EVENT DATE: 20220101
